FAERS Safety Report 25273768 (Version 1)
Quarter: 2025Q2

REPORT INFORMATION
  Report Type: Spontaneous
  Country: US (occurrence: None)
  Receive Date: 20250506
  Receipt Date: 20250506
  Transmission Date: 20250717
  Serious: Yes (Other)
  Sender: FDA-CTU
  Company Number: None

PATIENT
  Sex: Female

DRUGS (9)
  1. EUFLEXXA [Suspect]
     Active Substance: HYALURONATE SODIUM
     Indication: Osteoarthritis
     Dates: start: 20170302
  2. BREO ELLIPTA INH [Concomitant]
  3. FISH OIL [Concomitant]
     Active Substance: FISH OIL
  4. KLONOPIN [Concomitant]
     Active Substance: CLONAZEPAM
  5. MAVYRET [Concomitant]
     Active Substance: GLECAPREVIR\PIBRENTASVIR
  6. NAPROXEN [Concomitant]
     Active Substance: NAPROXEN
  7. PROAIR HFA [Concomitant]
     Active Substance: ALBUTEROL SULFATE
  8. THIAMINE HYDROCHLORIDE [Concomitant]
     Active Substance: THIAMINE HYDROCHLORIDE
  9. VITAMIN C [Concomitant]
     Active Substance: ASCORBIC ACID

REACTIONS (1)
  - Hepatitis C [None]
